FAERS Safety Report 22536306 (Version 1)
Quarter: 2023Q2

REPORT INFORMATION
  Report Type: Spontaneous
  Country: AR (occurrence: None)
  Receive Date: 20230608
  Receipt Date: 20230608
  Transmission Date: 20230721
  Serious: Yes (Other)
  Sender: FDA-Public Use
  Company Number: 2023A128952

PATIENT
  Age: 55 Year
  Sex: Male

DRUGS (1)
  1. LOKELMA [Suspect]
     Active Substance: SODIUM ZIRCONIUM CYCLOSILICATE
     Indication: Chronic kidney disease
     Route: 048
     Dates: end: 20230531

REACTIONS (5)
  - Arrhythmia [Unknown]
  - Hyperkalaemia [Not Recovered/Not Resolved]
  - Malaise [Unknown]
  - Product dispensing error [Not Recovered/Not Resolved]
  - Product availability issue [Unknown]

NARRATIVE: CASE EVENT DATE: 20230531
